FAERS Safety Report 13935370 (Version 1)
Quarter: 2017Q3

REPORT INFORMATION
  Report Type: Spontaneous
  Country: US (occurrence: None)
  Receive Date: 20170831
  Receipt Date: 20170831
  Transmission Date: 20171127
  Serious: No
  Sender: FDA-Public Use
  Company Number: None

PATIENT
  Age: 58 Year
  Sex: Male
  Weight: 84.82 kg

DRUGS (2)
  1. PRIALT [Suspect]
     Active Substance: ZICONOTIDE ACETATE
     Indication: BACK PAIN
     Route: 037
     Dates: start: 20170620, end: 20170831
  2. PRIALT [Suspect]
     Active Substance: ZICONOTIDE ACETATE
     Indication: LUMBAR RADICULOPATHY
     Route: 037
     Dates: start: 20170620, end: 20170831

REACTIONS (1)
  - Alopecia [None]

NARRATIVE: CASE EVENT DATE: 20170831
